FAERS Safety Report 8436921-2 (Version None)
Quarter: 2012Q2

REPORT INFORMATION
  Report Type: 
  Country: None (occurrence: None)
  Receive Date: 20120614
  Receipt Date: 20120104
  Transmission Date: 20120825
  Serious: Yes (Other)
  Sender: FDA-Public Use
  Company Number: US-AMGEN-USASP2012000413

PATIENT
  Age: 69 Year
  Sex: Female

DRUGS (3)
  1. EVISTA [Concomitant]
  2. ARANESP [Suspect]
     Indication: MYELODYSPLASTIC SYNDROME
     Dosage: 300 MUG, Q2WK
     Dates: start: 20060101, end: 20111003
  3. CALCIUM [Concomitant]

REACTIONS (4)
  - HAEMOGLOBIN DECREASED [None]
  - FEELING ABNORMAL [None]
  - BONE LESION [None]
  - THROMBOSIS [None]
